FAERS Safety Report 8511431-2 (Version None)
Quarter: 2012Q2

REPORT INFORMATION
  Report Type: 
  Country: None (occurrence: None)
  Receive Date: 20120629
  Receipt Date: 20120622
  Transmission Date: 20120825
  Serious: Yes (Hospitalization)
  Sender: FDA-Public Use
  Company Number: 2012SP033473

PATIENT
  Age: 67 Year
  Sex: Female
  Weight: 51 kg

DRUGS (3)
  1. XELODA [Suspect]
     Indication: PANCREATIC NEOPLASM
     Dosage: 800 MG, BID, PO
     Route: 048
     Dates: start: 20120520
  2. XELODA [Suspect]
     Indication: PANCREATIC NEOPLASM
     Dosage: 800 MG, BID, PO
     Route: 048
     Dates: start: 20120420, end: 20120503
  3. TEMODAL [Suspect]
     Indication: PANCREATIC NEOPLASM
     Dosage: 250 MG, QD, PO
     Route: 048
     Dates: start: 20120430, end: 20120503

REACTIONS (7)
  - LEUKOPENIA [None]
  - HAEMOGLOBIN DECREASED [None]
  - CONDITION AGGRAVATED [None]
  - NEUTROPENIA [None]
  - ORAL MUCOSA EROSION [None]
  - PURPURA [None]
  - THROMBOCYTOPENIA [None]
